FAERS Safety Report 9739553 (Version 1)
Quarter: 2013Q4

REPORT INFORMATION
  Report Type: Report from Study
  Country: RO (occurrence: RO)
  Receive Date: 20131209
  Receipt Date: 20131209
  Transmission Date: 20140711
  Serious: Yes (Hospitalization)
  Sender: FDA-Public Use
  Company Number: RO-ASTRAZENECA-2013SE87976

PATIENT
  Sex: 0

DRUGS (1)
  1. LIDOCAINE [Suspect]

REACTIONS (2)
  - Cardiovascular disorder [Unknown]
  - Toxicity to various agents [Unknown]
